FAERS Safety Report 17227556 (Version 9)
Quarter: 2020Q2

REPORT INFORMATION
  Report Type: Report from Study
  Country: US (occurrence: US)
  Receive Date: 20200103
  Receipt Date: 20200522
  Transmission Date: 20200713
  Serious: Yes (Hospitalization, Other)
  Sender: FDA-Public Use
  Company Number: NVSC2019US083986

PATIENT
  Age: 54 Year
  Sex: Male
  Weight: 98.5 kg

DRUGS (2)
  1. LAMPRENE [Suspect]
     Active Substance: CLOFAZIMINE
     Indication: MYCOBACTERIUM ABSCESSUS INFECTION
     Dosage: 100 MG
     Route: 048
     Dates: start: 20190628
  2. DOXYCYCLINE. [Concomitant]
     Active Substance: DOXYCYCLINE
     Indication: PRODUCT USED FOR UNKNOWN INDICATION
     Dosage: UNK
     Route: 065

REACTIONS (22)
  - Abdominal wall abscess [Recovered/Resolved]
  - Pyrexia [Recovering/Resolving]
  - Lung infiltration [Not Recovered/Not Resolved]
  - Rib deformity [Unknown]
  - Pneumonia [Not Recovered/Not Resolved]
  - Pleural effusion [Not Recovered/Not Resolved]
  - Incarcerated hernia [Unknown]
  - Pulmonary fistula [Unknown]
  - Procedural pain [Recovered/Resolved]
  - Post procedural complication [Recovered/Resolved]
  - Dyspnoea [Not Recovered/Not Resolved]
  - Sepsis [Not Recovered/Not Resolved]
  - Full blood count abnormal [Unknown]
  - Atelectasis [Unknown]
  - Adrenal adenoma [Unknown]
  - Dysuria [Unknown]
  - Lung opacity [Unknown]
  - White blood cell count increased [Unknown]
  - Productive cough [Unknown]
  - Hypercholesterolaemia [Not Recovered/Not Resolved]
  - Cough [Unknown]
  - Splenomegaly [Unknown]

NARRATIVE: CASE EVENT DATE: 20191226
